FAERS Safety Report 10843622 (Version 1)
Quarter: 2015Q1

REPORT INFORMATION
  Report Type: Spontaneous
  Country: DE (occurrence: DE)
  Receive Date: 20150220
  Receipt Date: 20150220
  Transmission Date: 20150721
  Serious: Yes (Hospitalization, Disabling, Other)
  Sender: FDA-Public Use
  Company Number: DE-JNJFOC-20150208672

PATIENT
  Age: 73 Year
  Sex: Male
  Weight: 94 kg

DRUGS (2)
  1. XARELTO [Suspect]
     Active Substance: RIVAROXABAN
     Indication: CEREBROVASCULAR ACCIDENT PROPHYLAXIS
     Route: 048
     Dates: start: 201308
  2. XARELTO [Suspect]
     Active Substance: RIVAROXABAN
     Indication: ATRIAL FIBRILLATION
     Route: 048
     Dates: start: 201308

REACTIONS (8)
  - Skull fractured base [Recovered/Resolved with Sequelae]
  - Deafness [Unknown]
  - Skull fracture [Recovered/Resolved with Sequelae]
  - Subdural haematoma [Unknown]
  - Loss of consciousness [Unknown]
  - Subarachnoid haemorrhage [Recovered/Resolved with Sequelae]
  - Contusion [Recovered/Resolved with Sequelae]
  - Fall [Unknown]

NARRATIVE: CASE EVENT DATE: 20150119
